FAERS Safety Report 19028702 (Version 1)
Quarter: 2021Q1

REPORT INFORMATION
  Report Type: Report from Study
  Country: JP (occurrence: JP)
  Receive Date: 20210319
  Receipt Date: 20210319
  Transmission Date: 20210420
  Serious: Yes (Other)
  Sender: FDA-Public Use
  Company Number: JP-JNJFOC-20200131750

PATIENT

DRUGS (6)
  1. ACETAMINOPHEN. [Concomitant]
     Active Substance: ACETAMINOPHEN
     Indication: PROPHYLAXIS
     Dosage: UNKNOWN
     Route: 065
  2. DARZALEX [Suspect]
     Active Substance: DARATUMUMAB
     Indication: PLASMA CELL MYELOMA
     Route: 041
  3. DARZALEX [Suspect]
     Active Substance: DARATUMUMAB
     Route: 041
  4. DIPHENHYDRAMINE SALICYLATE/DIPROPHYLLINE [Concomitant]
     Indication: PROPHYLAXIS
     Dosage: UNKNOWN
     Route: 065
  5. DARZALEX [Suspect]
     Active Substance: DARATUMUMAB
     Route: 041
  6. DEXAMETHASONE. [Concomitant]
     Active Substance: DEXAMETHASONE
     Indication: PROPHYLAXIS
     Dosage: UNKNOWN
     Route: 065

REACTIONS (12)
  - Diarrhoea [Unknown]
  - Lymphopenia [Unknown]
  - Vomiting [Unknown]
  - Chills [Unknown]
  - Anaemia [Unknown]
  - Thrombocytopenia [Unknown]
  - Infusion related reaction [Unknown]
  - Cough [Unknown]
  - Dyspnoea [Unknown]
  - Febrile neutropenia [Unknown]
  - Pyrexia [Unknown]
  - Neutropenia [Unknown]
